FAERS Safety Report 13397260 (Version 1)
Quarter: 2017Q2

REPORT INFORMATION
  Report Type: Spontaneous
  Country: JP (occurrence: JP)
  Receive Date: 20170403
  Receipt Date: 20170403
  Transmission Date: 20170830
  Serious: Yes (Other)
  Sender: FDA-Public Use
  Company Number: JP-BAYER-2017-056589

PATIENT
  Age: 22 Year
  Sex: Male
  Weight: 77 kg

DRUGS (1)
  1. ACETYLSALICYLIC ACID({=100 MG) [Suspect]
     Active Substance: ASPIRIN
     Dosage: 1200 MG/KG, UNK
     Route: 048

REACTIONS (12)
  - Respiratory alkalosis [None]
  - Pyrexia [None]
  - Tachycardia [None]
  - Nausea [None]
  - Suicide attempt [None]
  - Tachypnoea [None]
  - Product use issue [None]
  - Hepatic failure [None]
  - Dyspnoea [None]
  - Hepatic enzyme increased [Recovered/Resolved]
  - Tinnitus [None]
  - Hyperhidrosis [None]
